APPROVED DRUG PRODUCT: ONFI
Active Ingredient: CLOBAZAM
Strength: 2.5MG/ML
Dosage Form/Route: SUSPENSION;ORAL
Application: N203993 | Product #001 | TE Code: AB
Applicant: LUNDBECK PHARMACEUTICALS LLC
Approved: Dec 14, 2012 | RLD: Yes | RS: Yes | Type: RX